FAERS Safety Report 6093605-6 (Version None)
Quarter: 2009Q1

REPORT INFORMATION
  Report Type: 
  Country: None (occurrence: None)
  Receive Date: 20090226
  Receipt Date: 20090212
  Transmission Date: 20090719
  Serious: Yes (Other)
  Sender: FDA-Public Use
  Company Number: PHHY2009DE05447

PATIENT
  Age: 68 Year
  Sex: Female

DRUGS (5)
  1. CORDINATE PLUS [Suspect]
     Dosage: 1 DF, QD
     Route: 048
  2. TORSEMIDE [Concomitant]
     Dosage: 10 MG, QD
  3. BISOHEXAL [Concomitant]
     Dosage: 1 DF, QD
  4. MARCUMAR [Concomitant]
     Route: 048
  5. CLEXANE [Concomitant]

REACTIONS (5)
  - ATRIAL FIBRILLATION [None]
  - BLOOD PRESSURE INCREASED [None]
  - DIZZINESS [None]
  - EXCORIATION [None]
  - PROTHROMBIN TIME SHORTENED [None]
